FAERS Safety Report 12696514 (Version 1)
Quarter: 2016Q3

REPORT INFORMATION
  Report Type: Report from Study
  Country: FR (occurrence: FR)
  Receive Date: 20160830
  Receipt Date: 20160830
  Transmission Date: 20161109
  Serious: Yes (Death, Hospitalization)
  Sender: FDA-Public Use
  Company Number: FR-ROCHE-1819508

PATIENT
  Sex: Female

DRUGS (5)
  1. RITUXIMAB [Suspect]
     Active Substance: RITUXIMAB
     Indication: RHEUMATOID ARTHRITIS
     Dosage: FIRST INFUSION OF RITUXIMAB 1G (D1) ON 02/MAY/2008, (D15) ON 16/MAY/2008, (D1) ON 10/FEB/2009, (D15)
     Route: 041
  2. NOREPINEPHRINE [Concomitant]
     Active Substance: NOREPINEPHRINE\NOREPINEPHRINE BITARTRATE
     Route: 065
     Dates: start: 20130225, end: 20130303
  3. TAMIFLU [Concomitant]
     Active Substance: OSELTAMIVIR PHOSPHATE
     Route: 065
  4. ADRENALINE [Concomitant]
     Active Substance: EPINEPHRINE
     Route: 065
     Dates: start: 20130225, end: 20130313
  5. DOBUTAMINE [Concomitant]
     Active Substance: DOBUTAMINE\DOBUTAMINE HYDROCHLORIDE
     Route: 065
     Dates: start: 20130225, end: 20130313

REACTIONS (11)
  - Lung infection [Not Recovered/Not Resolved]
  - Infusion related reaction [Recovered/Resolved]
  - Septic shock [Fatal]
  - Nasopharyngitis [Recovered/Resolved]
  - Laryngitis [Recovered/Resolved]
  - Balance disorder [Recovered/Resolved]
  - Pericarditis [Recovered/Resolved]
  - Leukopenia [Recovered/Resolved]
  - Presyncope [Recovered/Resolved]
  - Influenza [Not Recovered/Not Resolved]
  - Oral fungal infection [Recovered/Resolved]

NARRATIVE: CASE EVENT DATE: 200808
